FAERS Safety Report 6124510-4 (Version None)
Quarter: 2009Q1

REPORT INFORMATION
  Report Type: 
  Country: None (occurrence: None)
  Receive Date: 20090317
  Receipt Date: 20090317
  Transmission Date: 20090719
  Serious: Yes (Other)
  Sender: FDA-Public Use
  Company Number: None

PATIENT
  Age: 35 Year
  Sex: Male
  Weight: 124.7392 kg

DRUGS (2)
  1. CYMBALTA [Suspect]
     Indication: BIPOLAR DISORDER
     Dosage: 30 MG PER DAY ONCE A DAY BUCCAL
     Route: 002
     Dates: start: 20040201, end: 20090316
  2. CYMBALTA [Suspect]
     Indication: DEPRESSION
     Dosage: 30 MG PER DAY ONCE A DAY BUCCAL
     Route: 002
     Dates: start: 20040201, end: 20090316

REACTIONS (14)
  - ABNORMAL DREAMS [None]
  - DEPRESSION [None]
  - DIZZINESS [None]
  - DRUG DOSE OMISSION [None]
  - ECONOMIC PROBLEM [None]
  - EMOTIONAL DISORDER [None]
  - FEELING OF DESPAIR [None]
  - HYPOAESTHESIA [None]
  - INFLUENZA LIKE ILLNESS [None]
  - MYALGIA [None]
  - NAUSEA [None]
  - PARAESTHESIA [None]
  - SUICIDAL IDEATION [None]
  - WITHDRAWAL SYNDROME [None]
